FAERS Safety Report 4720671-X (Version None)
Quarter: 2005Q3

REPORT INFORMATION
  Report Type: 
  Country: None (occurrence: None)
  Receive Date: 20050721
  Receipt Date: 20050321
  Transmission Date: 20060218
  Serious: Yes (Other)
  Sender: FDA-Public Use
  Company Number: 200512316US

PATIENT
  Sex: Female

DRUGS (6)
  1. LANTUS [Suspect]
     Indication: DIABETES MELLITUS NON-INSULIN-DEPENDENT
     Dosage: DOSE: 40/20; DOSE UNIT: UNITS
     Route: 051
  2. DIOVAN [Concomitant]
     Dosage: DOSE: UNKNOWN
  3. LASIX [Concomitant]
     Dosage: DOSE: UNKNOWN
  4. NORVASC [Concomitant]
     Dosage: DOSE: UNKNOWN
  5. PROTONIX [Concomitant]
     Dosage: DOSE: NOT PROVIDED
  6. CELEXA [Concomitant]
     Dosage: DOSE: NOT PROVIDED

REACTIONS (15)
  - ASTHENIA [None]
  - BLOOD GLUCOSE DECREASED [None]
  - CHEST DISCOMFORT [None]
  - CONFUSIONAL STATE [None]
  - DEPRESSED LEVEL OF CONSCIOUSNESS [None]
  - DIZZINESS [None]
  - DRUG INTERACTION [None]
  - DYSPNOEA [None]
  - FEELING ABNORMAL [None]
  - FEELING HOT [None]
  - HYPERHIDROSIS [None]
  - HYPOGLYCAEMIA [None]
  - OEDEMA PERIPHERAL [None]
  - PHARMACEUTICAL PRODUCT COMPLAINT [None]
  - PHOTOPSIA [None]
